FAERS Safety Report 10628410 (Version 1)
Quarter: 2014Q4

REPORT INFORMATION
  Report Type: Spontaneous
  Country: US (occurrence: US)
  Receive Date: 20141205
  Receipt Date: 20141205
  Transmission Date: 20150529
  Serious: No
  Sender: FDA-Public Use
  Company Number: US-BRISTOL-MYERS SQUIBB COMPANY-21436266

PATIENT
  Age: 32 Year
  Sex: Female

DRUGS (21)
  1. CLONAZEPAM. [Concomitant]
     Active Substance: CLONAZEPAM
  2. IMITREX [Concomitant]
     Active Substance: SUMATRIPTAN\SUMATRIPTAN SUCCINATE
  3. ZOFRAN [Concomitant]
     Active Substance: ONDANSETRON HYDROCHLORIDE
  4. NORTRIPTYLINE [Concomitant]
     Active Substance: NORTRIPTYLINE
  5. BUTALBITAL [Concomitant]
     Active Substance: BUTALBITAL
  6. AMITRIPTYLINE [Concomitant]
     Active Substance: AMITRIPTYLINE
  7. EXCEDRIN [Concomitant]
     Active Substance: ACETAMINOPHEN\ASPIRIN\CAFFEINE
  8. ADVIL [Concomitant]
     Active Substance: IBUPROFEN
  9. BACLOFEN. [Concomitant]
     Active Substance: BACLOFEN
  10. REGLAN [Concomitant]
     Active Substance: METOCLOPRAMIDE HYDROCHLORIDE
  11. LEXAPRO [Concomitant]
     Active Substance: ESCITALOPRAM OXALATE
  12. PROMETHAZINE [Concomitant]
     Active Substance: PROMETHAZINE\PROMETHAZINE HYDROCHLORIDE
  13. AMBIEN [Concomitant]
     Active Substance: ZOLPIDEM TARTRATE
  14. LAMICTAL [Concomitant]
     Active Substance: LAMOTRIGINE
  15. AMERGE [Concomitant]
     Active Substance: NARATRIPTAN HYDROCHLORIDE
  16. MELATONIN [Concomitant]
     Active Substance: MELATONIN
  17. PHENERGAN [Concomitant]
     Active Substance: PROMETHAZINE HYDROCHLORIDE
  18. SEROQUEL [Concomitant]
     Active Substance: QUETIAPINE FUMARATE
  19. ABILIFY [Suspect]
     Active Substance: ARIPIPRAZOLE
     Dosage: 6-MAY-13- 20MG/DAY 7DAYS,15MGX7 DAYS,FOLLOWED BY 10MG + 5 MG FOR 7DAYS.
     Dates: start: 20120605
  20. XANAX [Concomitant]
     Active Substance: ALPRAZOLAM
  21. CODEINE [Concomitant]
     Active Substance: CODEINE

REACTIONS (1)
  - Oculogyric crisis [Recovered/Resolved]
